FAERS Safety Report 6863025-2 (Version None)
Quarter: 2010Q3

REPORT INFORMATION
  Report Type: 
  Country: None (occurrence: None)
  Receive Date: 20100721
  Receipt Date: 20100707
  Transmission Date: 20110219
  Serious: Yes (Other)
  Sender: FDA-Public Use
  Company Number: BR-JNJFOC-20100705463

PATIENT
  Sex: Female
  Weight: 70 kg

DRUGS (6)
  1. TRAMAL [Suspect]
     Indication: TRIGEMINAL NEURALGIA
     Route: 048
  2. TRAMAL [Suspect]
     Route: 048
  3. VALIUM [Concomitant]
     Route: 065
  4. TEGRETOL [Concomitant]
     Route: 065
  5. PROPRANOLOL [Concomitant]
     Route: 065
  6. CAPTOPRIL [Concomitant]
     Route: 065

REACTIONS (5)
  - DRUG INEFFECTIVE [None]
  - DYSGEUSIA [None]
  - GASTRIC DISORDER [None]
  - SOMNOLENCE [None]
  - SWELLING FACE [None]
